FAERS Safety Report 8029748-7 (Version None)
Quarter: 2012Q1

REPORT INFORMATION
  Report Type: 
  Country: None (occurrence: None)
  Receive Date: 20120109
  Receipt Date: 20111230
  Transmission Date: 20120608
  Serious: Yes (Other)
  Sender: FDA-Public Use
  Company Number: US-BAYER-2012-001771

PATIENT
  Age: 18 Year
  Sex: Female
  Weight: 76.19 kg

DRUGS (4)
  1. TAZORAC [Concomitant]
     Dosage: UNK
     Dates: start: 20080801
  2. YAZ [Suspect]
     Dosage: UNK
     Route: 048
     Dates: start: 20080227, end: 20081015
  3. YASMIN [Suspect]
     Dosage: UNK
     Route: 048
     Dates: start: 20080227, end: 20081015
  4. MINOCYCLINE HCL [Concomitant]
     Dosage: UNK
     Dates: start: 20080701, end: 20080820

REACTIONS (1)
  - DEEP VEIN THROMBOSIS [None]
